FAERS Safety Report 17709396 (Version 1)
Quarter: 2020Q2

REPORT INFORMATION
  Report Type: Spontaneous
  Country: ES (occurrence: ES)
  Receive Date: 20200427
  Receipt Date: 20200427
  Transmission Date: 20200714
  Serious: Yes (Other)
  Sender: FDA-Public Use
  Company Number: ES-HQ SPECIALTY-ES-2020INT000047

PATIENT

DRUGS (3)
  1. CISPLATIN. [Suspect]
     Active Substance: CISPLATIN
     Indication: GASTRIC CANCER
     Dosage: 50 MG/M2, Q14 DAYS, 60-MIN IV INFUSION AFTER PANITUMUMAB ADMINISTRATION
     Route: 042
  2. DOCETAXEL. [Suspect]
     Active Substance: DOCETAXEL
     Indication: GASTRIC CANCER
     Dosage: 50 MG/M2, Q14 DAYS, 60-MIN IV INFUSION AFTER PANITUMUMAB ADMINISTRATION
     Route: 042
  3. PANITUMUMAB [Suspect]
     Active Substance: PANITUMUMAB
     Indication: GASTRIC CANCER
     Dosage: 6 MG/KG, Q14 DAYS, OVER A 60 (+/-15)-MIN IV INFUSION
     Route: 042

REACTIONS (1)
  - Pulmonary embolism [Unknown]
